FAERS Safety Report 25688609 (Version 2)
Quarter: 2025Q3

REPORT INFORMATION
  Report Type: Report from Study
  Country: CA (occurrence: CA)
  Receive Date: 20250818
  Receipt Date: 20250925
  Transmission Date: 20251020
  Serious: Yes (Other)
  Sender: ROCHE
  Company Number: CA-ROCHE-10000364269

PATIENT
  Sex: Female

DRUGS (16)
  1. ACTEMRA [Suspect]
     Active Substance: TOCILIZUMAB
     Indication: Rheumatoid arthritis
     Route: 042
     Dates: start: 20180926, end: 20190211
  2. ACTEMRA [Suspect]
     Active Substance: TOCILIZUMAB
     Route: 042
     Dates: start: 20190311, end: 20191021
  3. ACTEMRA [Suspect]
     Active Substance: TOCILIZUMAB
     Route: 042
     Dates: start: 20191118, end: 20200914
  4. ACTEMRA [Suspect]
     Active Substance: TOCILIZUMAB
     Route: 042
     Dates: start: 20201012, end: 20201012
  5. ACTEMRA [Suspect]
     Active Substance: TOCILIZUMAB
     Route: 042
     Dates: start: 20201109, end: 2022
  6. ACTEMRA [Suspect]
     Active Substance: TOCILIZUMAB
     Route: 042
     Dates: start: 2022, end: 2023
  7. ACTEMRA [Suspect]
     Active Substance: TOCILIZUMAB
     Route: 042
     Dates: start: 2023
  8. ACTEMRA [Suspect]
     Active Substance: TOCILIZUMAB
     Route: 042
  9. ACTONEL [Concomitant]
     Active Substance: RISEDRONATE SODIUM
  10. CELEBREX [Concomitant]
     Active Substance: CELECOXIB
  11. FOLIC ACID [Concomitant]
     Active Substance: FOLIC ACID
  12. HYDROMORPHONE [Concomitant]
     Active Substance: HYDROMORPHONE
  13. LYRICA [Concomitant]
     Active Substance: PREGABALIN
  14. METHOTREXATE [Concomitant]
     Active Substance: METHOTREXATE
  15. PROLIA [Concomitant]
     Active Substance: DENOSUMAB
  16. SULFASALAZINE [Concomitant]
     Active Substance: SULFASALAZINE

REACTIONS (1)
  - Ill-defined disorder [Unknown]
